FAERS Safety Report 8189311-4 (Version None)
Quarter: 2012Q1

REPORT INFORMATION
  Report Type: 
  Country: None (occurrence: None)
  Receive Date: 20120307
  Receipt Date: 20120302
  Transmission Date: 20120608
  Serious: Yes (Death, Hospitalization)
  Sender: FDA-Public Use
  Company Number: PHHY2012BR018474

PATIENT
  Sex: Female

DRUGS (1)
  1. LESCOL XL [Suspect]
     Dosage: 2 DF, BIW
     Route: 048

REACTIONS (2)
  - CARDIO-RESPIRATORY ARREST [None]
  - ARRHYTHMIA [None]
